FAERS Safety Report 5456819-1 (Version None)
Quarter: 2007Q3

REPORT INFORMATION
  Report Type: 
  Country: None (occurrence: None)
  Receive Date: 20070917
  Receipt Date: 20070917
  Transmission Date: 20080115
  Serious: No
  Sender: FDA-Public Use
  Company Number: None

PATIENT
  Age: 63 Year
  Sex: Female
  Weight: 65.7716 kg

DRUGS (2)
  1. PAROXETINE [Suspect]
     Indication: PSYCHOTIC DISORDER
     Dosage: 10MG PO QD
     Route: 048
     Dates: start: 20070701, end: 20070901
  2. PAROXETINE [Suspect]
     Indication: SCHIZOPHRENIA
     Dosage: 10MG PO QD
     Route: 048
     Dates: start: 20070701, end: 20070901

REACTIONS (6)
  - ASTHENIA [None]
  - FATIGUE [None]
  - HYPERSOMNIA [None]
  - INCREASED APPETITE [None]
  - NAUSEA [None]
  - VISION BLURRED [None]
